APPROVED DRUG PRODUCT: CLORAZEPATE DIPOTASSIUM
Active Ingredient: CLORAZEPATE DIPOTASSIUM
Strength: 3.75MG
Dosage Form/Route: TABLET;ORAL
Application: A072514 | Product #002
Applicant: AUROLIFE PHARMA LLC
Approved: May 11, 1990 | RLD: No | RS: No | Type: DISCN